FAERS Safety Report 7908540-5 (Version None)
Quarter: 2011Q4

REPORT INFORMATION
  Report Type: 
  Country: None (occurrence: None)
  Receive Date: 20111111
  Receipt Date: 20111107
  Transmission Date: 20120403
  Serious: Yes (Death)
  Sender: FDA-Public Use
  Company Number: IT-PFIZER INC-2011273171

PATIENT
  Age: 70 Year
  Sex: Female
  Weight: 65 kg

DRUGS (6)
  1. CYTARABINE [Suspect]
     Indication: ACUTE MYELOID LEUKAEMIA
     Dosage: 170 MG, 1X/DAY
     Route: 042
     Dates: start: 20041224, end: 20041230
  2. ETOPOSIDE [Suspect]
     Indication: ACUTE MYELOID LEUKAEMIA
     Dosage: 170 MG, 1X/DAY
     Route: 042
     Dates: start: 20041224, end: 20041226
  3. LEVOFLOXACIN [Concomitant]
     Indication: PROPHYLAXIS
  4. GEMTUZUMAB OZOGAMICIN [Suspect]
     Indication: ACUTE MYELOID LEUKAEMIA
     Dosage: 10MG
     Route: 042
     Dates: start: 20041206
  5. MITOXANTRONE [Suspect]
     Indication: ACUTE MYELOID LEUKAEMIA
     Dosage: 12 MG, ALTERNATE DAY
     Route: 042
     Dates: start: 20041224, end: 20041228
  6. ITRACONAZOLE [Concomitant]
     Indication: PROPHYLAXIS

REACTIONS (3)
  - SEPTIC SHOCK [None]
  - BLOOD LACTATE DEHYDROGENASE INCREASED [None]
  - DIARRHOEA [None]
